FAERS Safety Report 4397590-4 (Version None)
Quarter: 2004Q3

REPORT INFORMATION
  Report Type: 
  Country: None (occurrence: None)
  Receive Date: 20040708
  Receipt Date: 20040628
  Transmission Date: 20050211
  Serious: Yes (Other)
  Sender: FDA-Public Use
  Company Number: STA-AE-04-MTX-204

PATIENT
  Age: 50 Year
  Sex: Female

DRUGS (9)
  1. METHOTREXATE [Suspect]
     Indication: PSORIATIC ARTHROPATHY
     Dosage: 15 MG PER WEEK
     Dates: start: 20010702, end: 20011101
  2. METHOTREXATE [Suspect]
     Indication: PSORIATIC ARTHROPATHY
     Dosage: INCREASING DOSES FROM 7.5 MG TO 17.5 MG PER WEEK
     Dates: start: 19991025, end: 20010701
  3. METHOTREXATE [Suspect]
     Indication: RHEUMATOID ARTHRITIS
     Dosage: 10 MG PER WEEK
     Dates: start: 20011101, end: 20020114
  4. METHOTREXATE [Suspect]
     Indication: RHEUMATOID ARTHRITIS
     Dosage: 5 MG PER WEEK
     Dates: start: 20020115, end: 20020205
  5. METHOTREXATE [Suspect]
     Indication: RHEUMATOID ARTHRITIS
     Dosage: 25 MG 2X PER WK, SC
     Route: 058
     Dates: start: 20010619
  6. COD-LIVER (COD-LIVER OIL) [Concomitant]
  7. CALCICHEW (CALCIUM CARBONATE) [Concomitant]
  8. PREDNISOLONE [Concomitant]
  9. CYCLOSPORINE [Concomitant]

REACTIONS (4)
  - ANTINUCLEAR ANTIBODY POSITIVE [None]
  - PLATELET COUNT DECREASED [None]
  - PSORIATIC ARTHROPATHY [None]
  - WHITE BLOOD CELL COUNT DECREASED [None]
